FAERS Safety Report 17250710 (Version 1)
Quarter: 2020Q1

REPORT INFORMATION
  Report Type: Spontaneous
  Country: AR (occurrence: AR)
  Receive Date: 20200109
  Receipt Date: 20200109
  Transmission Date: 20200409
  Serious: Yes (Other)
  Sender: FDA-Public Use
  Company Number: AR-AMGEN-ARGSP2020002032

PATIENT
  Age: 75 Year
  Sex: Female

DRUGS (1)
  1. ENBREL [Suspect]
     Active Substance: ETANERCEPT
     Indication: PSORIASIS
     Dosage: 50 MILLIGRAM, QWK
     Route: 065
     Dates: start: 20191216

REACTIONS (6)
  - Erythema [Unknown]
  - Lower limb fracture [Unknown]
  - Hypersensitivity [Unknown]
  - Pruritus [Unknown]
  - Arthralgia [Unknown]
  - Feeling of despair [Unknown]

NARRATIVE: CASE EVENT DATE: 20191216
